FAERS Safety Report 25089461 (Version 1)
Quarter: 2025Q1

REPORT INFORMATION
  Report Type: Spontaneous
  Country: US (occurrence: None)
  Receive Date: 20250317
  Receipt Date: 20250317
  Transmission Date: 20250409
  Serious: Yes (Life-Threatening, Hospitalization)
  Sender: FDA-CTU
  Company Number: None

PATIENT
  Age: 54 Year
  Sex: Female
  Weight: 47.1 kg

DRUGS (1)
  1. BENZOCAINE [Suspect]
     Active Substance: BENZOCAINE
     Indication: Oropharyngeal pain
     Route: 048
     Dates: start: 20250106, end: 20250107

REACTIONS (3)
  - Intestinal ischaemia [None]
  - Hypoxia [None]
  - Blood methaemoglobin present [None]

NARRATIVE: CASE EVENT DATE: 20250107
